FAERS Safety Report 6972523-2 (Version None)
Quarter: 2010Q3

REPORT INFORMATION
  Report Type: 
  Country: None (occurrence: None)
  Receive Date: 20100824
  Receipt Date: 20100429
  Transmission Date: 20110219
  Serious: No
  Sender: FDA-Public Use
  Company Number: 307920

PATIENT
  Age: 58 Year
  Sex: Female

DRUGS (1)
  1. VICTOZA [Suspect]
     Indication: BLOOD INSULIN
     Dosage: SUBCUTANEOUS
     Route: 058
     Dates: start: 20100415

REACTIONS (3)
  - DIZZINESS [None]
  - FATIGUE [None]
  - PANIC ATTACK [None]
